FAERS Safety Report 11244048 (Version 4)
Quarter: 2015Q4

REPORT INFORMATION
  Report Type: Report from Study
  Country: US (occurrence: US)
  Receive Date: 20150707
  Receipt Date: 20151015
  Transmission Date: 20160304
  Serious: Yes (Other)
  Sender: FDA-Public Use
  Company Number: US-SA-2014SA090809

PATIENT
  Age: 68 Year
  Sex: Female

DRUGS (2)
  1. AUBAGIO [Suspect]
     Active Substance: TERIFLUNOMIDE
     Indication: MULTIPLE SCLEROSIS
     Route: 048
  2. AUBAGIO [Suspect]
     Active Substance: TERIFLUNOMIDE
     Indication: MULTIPLE SCLEROSIS
     Route: 048
     Dates: start: 20140625

REACTIONS (13)
  - Hyperhidrosis [Unknown]
  - Memory impairment [Not Recovered/Not Resolved]
  - Therapeutic response unexpected [Unknown]
  - Nausea [Unknown]
  - Nervousness [Unknown]
  - Dysuria [Unknown]
  - Hypoaesthesia [Unknown]
  - Drug dose omission [Unknown]
  - Urinary tract infection [Unknown]
  - Hepatic enzyme increased [Unknown]
  - Abdominal pain upper [Unknown]
  - Diarrhoea [Unknown]
  - Somnolence [Unknown]
